APPROVED DRUG PRODUCT: VITAMIN A PALMITATE
Active Ingredient: VITAMIN A PALMITATE
Strength: EQ 50,000 UNITS BASE
Dosage Form/Route: CAPSULE;ORAL
Application: A083321 | Product #001
Applicant: ARCUM PHARMACEUTICAL CORP
Approved: Approved Prior to Jan 1, 1982 | RLD: No | RS: No | Type: DISCN